FAERS Safety Report 6891648-3 (Version None)
Quarter: 2010Q3

REPORT INFORMATION
  Report Type: 
  Country: None (occurrence: None)
  Receive Date: 20100731
  Receipt Date: 20070910
  Transmission Date: 20110219
  Serious: No
  Sender: FDA-Public Use
  Company Number: US-PFIZER INC-2007075787

PATIENT
  Sex: Female
  Weight: 68.636 kg

DRUGS (8)
  1. INSPRA [Suspect]
     Route: 048
     Dates: start: 20070101
  2. REVATIO [Suspect]
     Indication: CARDIAC FAILURE CONGESTIVE
     Route: 048
     Dates: start: 20070901
  3. LEXAPRO [Concomitant]
  4. FUROSEMIDE [Concomitant]
  5. DIGOXIN [Concomitant]
  6. CUMADIN [Concomitant]
  7. NEXIUM [Concomitant]
  8. AVAPRO [Concomitant]

REACTIONS (2)
  - DISORIENTATION [None]
  - MALAISE [None]
